FAERS Safety Report 22016451 (Version 2)
Quarter: 2023Q2

REPORT INFORMATION
  Report Type: Spontaneous
  Country: FR (occurrence: FR)
  Receive Date: 20230221
  Receipt Date: 20230413
  Transmission Date: 20230721
  Serious: Yes (Other)
  Sender: FDA-Public Use
  Company Number: FR-Merck Healthcare KGaA-9383891

PATIENT
  Sex: Female

DRUGS (1)
  1. LEVOTHYROXINE [Suspect]
     Active Substance: LEVOTHYROXINE
     Indication: Thyroid disorder
     Dates: start: 2017

REACTIONS (10)
  - Blindness [Unknown]
  - Mental disorder [Unknown]
  - Impaired quality of life [Unknown]
  - Malaise [Unknown]
  - Arthralgia [Unknown]
  - Alopecia [Unknown]
  - Fatigue [Unknown]
  - Anxiety [Unknown]
  - Palpitations [Unknown]
  - Adverse event [Unknown]
